FAERS Safety Report 12491218 (Version 1)
Quarter: 2016Q2

REPORT INFORMATION
  Report Type: Spontaneous
  Country: FR (occurrence: FR)
  Receive Date: 20160623
  Receipt Date: 20160623
  Transmission Date: 20160815
  Serious: Yes (Hospitalization)
  Sender: FDA-Public Use
  Company Number: FR-ASTRAZENECA-2016SE67547

PATIENT
  Age: 24202 Day
  Sex: Female

DRUGS (18)
  1. LYRICA [Suspect]
     Active Substance: PREGABALIN
     Route: 048
  2. FUNGIZONE [Concomitant]
     Active Substance: AMPHOTERICIN B
     Dosage: IN THE MORNING AND IN THE EVENING
     Route: 048
  3. NORDAZEPAM [Suspect]
     Active Substance: NORDAZEPAM
     Route: 065
  4. LOVENOX [Concomitant]
     Active Substance: ENOXAPARIN SODIUM
     Route: 058
  5. BETNEVAL [Concomitant]
     Active Substance: BETAMETHASONE VALERATE
     Dosage: 0.1% ONE APPLICATION TWICE A DAY
  6. DAFALGAN [Concomitant]
     Active Substance: ACETAMINOPHEN
     Dosage: 500 MG, IN THE MORNING, AT NOON AND TWO CAPSULES IN THE EVENING
  7. CERULYSE [Concomitant]
     Dosage: 5% ONCE PER DAY
  8. FREZUBIN [Concomitant]
     Dosage: 500CC PER DAY
  9. XEROQUEL [Suspect]
     Active Substance: QUETIAPINE FUMARATE
     Indication: DEPRESSION
     Dosage: 8 PER DAY IN THE EVENING
     Route: 048
  10. ACUPAN [Suspect]
     Active Substance: NEFOPAM HYDROCHLORIDE
     Route: 065
  11. CODEINE [Suspect]
     Active Substance: CODEINE
     Route: 065
  12. ALPRAZOLAM. [Suspect]
     Active Substance: ALPRAZOLAM
     Dosage: 0.5 MG TWO OR THREE TIMES A DAY
     Route: 048
  13. XEROQUEL [Suspect]
     Active Substance: QUETIAPINE FUMARATE
     Indication: DEPRESSION
     Dosage: 50 MG WAS ADMINISTERED AT A TOTAL DAILY DOSE OF 400 MG
     Route: 048
  14. KEPPRA [Suspect]
     Active Substance: LEVETIRACETAM
     Route: 048
  15. DIFFU K [Concomitant]
     Active Substance: POTASSIUM CHLORIDE
     Dosage: TWO CAPSULES THREE TIMES A DAY
  16. SPASFON [Concomitant]
     Active Substance: PHLOROGLUCINOL
     Dosage: TWO DOSAGE FORMS THREE TIMES A DAY
  17. XEROQUEL [Suspect]
     Active Substance: QUETIAPINE FUMARATE
     Indication: DEPRESSION
     Dosage: INITIATED AT 50 MG WITH A PLANNED PROGRESSIVE DOSE ESCALATION
     Route: 048
  18. SERTRALINE [Suspect]
     Active Substance: SERTRALINE HYDROCHLORIDE
     Route: 048

REACTIONS (4)
  - Miosis [Unknown]
  - Pain [Unknown]
  - Somnolence [Recovered/Resolved]
  - Coma [Recovered/Resolved]

NARRATIVE: CASE EVENT DATE: 20160524
